FAERS Safety Report 8477416-X (Version None)
Quarter: 2012Q2

REPORT INFORMATION
  Report Type: 
  Country: None (occurrence: None)
  Receive Date: 20120629
  Receipt Date: 20120625
  Transmission Date: 20120825
  Serious: No
  Sender: FDA-Public Use
  Company Number: US-PFIZER INC-2012151070

PATIENT
  Sex: Female
  Weight: 58.957 kg

DRUGS (4)
  1. LYRICA [Suspect]
     Indication: TRIGEMINAL NEURALGIA
     Dosage: 50 MG, 4X/DAY
     Route: 048
     Dates: start: 20120507
  2. HUMIRA [Suspect]
     Indication: ARTHRITIS
     Dosage: 40 MG, ONCE IN EVERY TWO WEEK
  3. LYRICA [Suspect]
     Indication: PAIN IN JAW
     Dosage: 150 MG, 1X/DAY
     Route: 048
  4. ZOLPIDEM TARTRATE [Concomitant]
     Indication: INSOMNIA
     Dosage: 10 MG, DAILY

REACTIONS (3)
  - INSOMNIA [None]
  - FIBROMYALGIA [None]
  - TOOTHACHE [None]
